FAERS Safety Report 4899676-4 (Version None)
Quarter: 2006Q1

REPORT INFORMATION
  Report Type: 
  Country: None (occurrence: None)
  Receive Date: 20060202
  Receipt Date: 20060123
  Transmission Date: 20060701
  Serious: Yes (Hospitalization)
  Sender: FDA-Public Use
  Company Number: US-MERCK-0601USA02661

PATIENT
  Age: 66 Year
  Sex: Male
  Weight: 84 kg

DRUGS (2)
  1. TYLENOL [Concomitant]
     Route: 065
  2. VIOXX [Suspect]
     Indication: ARTHRALGIA
     Route: 048
     Dates: start: 20010905, end: 20040801

REACTIONS (14)
  - ANXIETY [None]
  - ARTHROPOD BITE [None]
  - CEREBROVASCULAR ACCIDENT [None]
  - CHEST PAIN [None]
  - CONVULSION [None]
  - DEPRESSION [None]
  - DYSPNOEA [None]
  - FACIAL PALSY [None]
  - HYPERGLYCAEMIA [None]
  - HYPERTENSION [None]
  - INTESTINAL OBSTRUCTION [None]
  - LACUNAR INFARCTION [None]
  - MALAISE [None]
  - STRESS [None]
